FAERS Safety Report 4348492-0 (Version None)
Quarter: 2004Q2

REPORT INFORMATION
  Report Type: 
  Country: None (occurrence: None)
  Receive Date: 20040422
  Receipt Date: 20040406
  Transmission Date: 20050107
  Serious: Yes (Hospitalization, Other)
  Sender: FDA-Public Use
  Company Number: DE_040112745

PATIENT
  Age: 42 Year
  Sex: Male

DRUGS (1)
  1. CIALIS [Suspect]
     Dosage: 20 MG/AS NEEDED
     Dates: start: 20030715, end: 20030915

REACTIONS (13)
  - APLASTIC ANAEMIA [None]
  - ARTHRALGIA [None]
  - AUTOIMMUNE HEPATITIS [None]
  - BONE MARROW DEPRESSION [None]
  - EPSTEIN-BARR VIRUS ANTIGEN POSITIVE [None]
  - INFECTION [None]
  - INFLUENZA [None]
  - JOINT SWELLING [None]
  - MYELODYSPLASTIC SYNDROME [None]
  - PAIN IN EXTREMITY [None]
  - PANCYTOPENIA [None]
  - PYREXIA [None]
  - THROMBOCYTOPENIA [None]
